FAERS Safety Report 7854276-9 (Version None)
Quarter: 2011Q4

REPORT INFORMATION
  Report Type: 
  Country: None (occurrence: None)
  Receive Date: 20111026
  Receipt Date: 20111024
  Transmission Date: 20120403
  Serious: Yes (Death)
  Sender: FDA-Public Use
  Company Number: US-ELI_LILLY_AND_COMPANY-US201109005731

PATIENT
  Sex: Female

DRUGS (1)
  1. GEMZAR [Suspect]
     Dosage: 1700 MG DAY1,8 EVERY 21 DAYS
     Route: 042
     Dates: start: 20110718, end: 20110725

REACTIONS (1)
  - NEOPLASM PROGRESSION [None]
